FAERS Safety Report 8891323 (Version 1)
Quarter: 2012Q4

REPORT INFORMATION
  Report Type: Spontaneous
  Country: US (occurrence: None)
  Receive Date: 20121105
  Receipt Date: 20121105
  Transmission Date: 20130627
  Serious: No
  Sender: FDA-Public Use
  Company Number: None

PATIENT
  Age: 67 Year
  Sex: Female
  Weight: 111.13 kg

DRUGS (1)
  1. LEVEMIR [Suspect]
     Indication: TYPE II DIABETES MELLITUS
     Route: 058
     Dates: start: 201208, end: 201210

REACTIONS (4)
  - Blood glucose increased [None]
  - Injection site pruritus [None]
  - Injection site erythema [None]
  - Injection site mass [None]
